FAERS Safety Report 8129472-6 (Version None)
Quarter: 2011Q4

REPORT INFORMATION
  Report Type: 
  Country: None (occurrence: None)
  Receive Date: 20111227
  Receipt Date: 20110914
  Transmission Date: 20120403
  Serious: No
  Sender: FDA-Public Use
  Company Number: PHEH2011US03139

PATIENT
  Age: 35 Year
  Sex: Female
  Weight: 90.7 kg

DRUGS (8)
  1. GILENYA [Suspect]
     Indication: MULTIPLE SCLEROSIS
     Dosage: 0.5 MG, QD, ORAL
     Route: 048
     Dates: start: 20110822
  2. NEURONTIN [Concomitant]
  3. VICODIN [Concomitant]
  4. ADDERA;; )A,FETA,OME ASPARTATE, AMFETAMINE SULFATE, DEXAMFETAMINE SACC [Concomitant]
  5. XANAX [Concomitant]
  6. BACLOFEN [Concomitant]
  7. SOMA [Concomitant]
  8. LYRICA [Concomitant]

REACTIONS (2)
  - FATIGUE [None]
  - MUSCLE SPASMS [None]
